FAERS Safety Report 5119219-X (Version None)
Quarter: 2006Q4

REPORT INFORMATION
  Report Type: 
  Country: None (occurrence: None)
  Receive Date: 20061003
  Receipt Date: 20060922
  Transmission Date: 20070319
  Serious: Yes (Hospitalization)
  Sender: FDA-Public Use
  Company Number: DK-JNJFOC-20060905271

PATIENT
  Sex: Female
  Weight: 60 kg

DRUGS (3)
  1. CILEST [Suspect]
     Indication: CONTRACEPTION
     Route: 048
  2. PROPRANOLOL [Concomitant]
     Route: 065
  3. DICILLIN [Concomitant]
     Route: 065

REACTIONS (1)
  - SYNCOPE [None]
